FAERS Safety Report 10842715 (Version 2)
Quarter: 2015Q1

REPORT INFORMATION
  Report Type: Spontaneous
  Country: US (occurrence: US)
  Receive Date: 20150220
  Receipt Date: 20150318
  Transmission Date: 20150721
  Serious: Yes (Death, Hospitalization)
  Sender: FDA-Public Use
  Company Number: US-JNJFOC-20150213934

PATIENT
  Sex: Female

DRUGS (1)
  1. IMBRUVICA [Suspect]
     Active Substance: IBRUTINIB
     Indication: PLASMA CELL MYELOMA
     Route: 048
     Dates: start: 201501, end: 201502

REACTIONS (3)
  - Asthenia [Unknown]
  - Disease progression [Fatal]
  - Subdural haematoma [Unknown]

NARRATIVE: CASE EVENT DATE: 20150208
